FAERS Safety Report 7704801-3 (Version None)
Quarter: 2011Q3

REPORT INFORMATION
  Report Type: 
  Country: None (occurrence: None)
  Receive Date: 20110823
  Receipt Date: 20110809
  Transmission Date: 20111222
  Serious: Yes (Other)
  Sender: FDA-Public Use
  Company Number: US-US-EMD SERONO, INC.-7078251

PATIENT
  Sex: Female

DRUGS (2)
  1. OVIDREL [Suspect]
     Indication: INFERTILITY
     Dates: end: 20070501
  2. CLOMID [Suspect]
     Indication: INFERTILITY
     Dates: end: 20070501

REACTIONS (1)
  - ABORTION SPONTANEOUS [None]
